FAERS Safety Report 8106002 (Version 3)
Quarter: 2013Q4

REPORT INFORMATION
  Report Type: Spontaneous
  Country: US (occurrence: US)
  Receive Date: 20110825
  Receipt Date: 20131202
  Transmission Date: 20140711
  Serious: Yes (Other)
  Sender: FDA-Public Use
  Company Number: US-BAYER-2011-075539

PATIENT
  Age: 18 Year
  Sex: Female
  Weight: 74.38 kg

DRUGS (4)
  1. YAZ [Suspect]
     Dosage: UNK
     Dates: start: 2001, end: 2009
  2. NAPROXEN [Concomitant]
  3. IBUPROFEN [Concomitant]
     Dosage: 600 MG, EVERY 6 HRS PRN
     Route: 048
  4. SUR-Q-LAX [Concomitant]
     Dosage: 240 MG, BID
     Route: 048

REACTIONS (2)
  - Gallbladder injury [None]
  - Cholecystitis chronic [None]
